FAERS Safety Report 4354508-8 (Version None)
Quarter: 2004Q2

REPORT INFORMATION
  Report Type: 
  Country: None (occurrence: None)
  Receive Date: 20040503
  Receipt Date: 20040416
  Transmission Date: 20050107
  Serious: No
  Sender: FDA-Public Use
  Company Number: APP200400366

PATIENT
  Sex: Female

DRUGS (1)
  1. PROFASI HP [Suspect]
     Indication: INFERTILITY
     Dosage: INJECTION

REACTIONS (1)
  - ANAPHYLACTIC REACTION [None]
